FAERS Safety Report 23525711 (Version 1)
Quarter: 2024Q1

REPORT INFORMATION
  Report Type: Spontaneous
  Country: CA (occurrence: CA)
  Receive Date: 20240215
  Receipt Date: 20240215
  Transmission Date: 20240409
  Serious: Yes (Life-Threatening)
  Sender: FDA-Public Use
  Company Number: None

PATIENT
  Age: 16 Year
  Sex: Female

DRUGS (1)
  1. IMATINIB [Suspect]
     Active Substance: IMATINIB
     Indication: Philadelphia positive acute lymphocytic leukaemia
     Dosage: 200 MG, QD
     Route: 065

REACTIONS (2)
  - Escherichia sepsis [Recovering/Resolving]
  - Neutropenic colitis [Recovering/Resolving]
